FAERS Safety Report 4696528-X (Version None)
Quarter: 2005Q2

REPORT INFORMATION
  Report Type: 
  Country: None (occurrence: None)
  Receive Date: 20050620
  Receipt Date: 20050603
  Transmission Date: 20051028
  Serious: No
  Sender: FDA-Public Use
  Company Number: 2005BL003486

PATIENT
  Age: 65 Year
  Sex: Female

DRUGS (2)
  1. CARTEOLOL HCL [Suspect]
     Indication: GLAUCOMA
     Dosage: 2 DROP; TWICE A DAY; OPHTHALMIC
     Route: 047
     Dates: start: 20050201
  2. LUMIGAN [Concomitant]

REACTIONS (1)
  - INTRAOCULAR PRESSURE INCREASED [None]
